FAERS Safety Report 21447167 (Version 1)
Quarter: 2022Q4

REPORT INFORMATION
  Report Type: Spontaneous
  Country: TR (occurrence: TR)
  Receive Date: 20221012
  Receipt Date: 20221012
  Transmission Date: 20230113
  Serious: Yes (Other)
  Sender: FDA-Public Use
  Company Number: TR-MYLANLABS-202201165317

PATIENT
  Age: 35 Year
  Sex: Male

DRUGS (1)
  1. VENLAFAXINE HYDROCHLORIDE [Suspect]
     Active Substance: VENLAFAXINE HYDROCHLORIDE
     Indication: Panic attack
     Dosage: 150 MILLIGRAM, 7 YEARS
     Route: 065

REACTIONS (9)
  - Drug withdrawal syndrome [Unknown]
  - Disturbance in attention [Unknown]
  - Feeling abnormal [Unknown]
  - Panic attack [Unknown]
  - Motion sickness [Unknown]
  - Hypoaesthesia [Unknown]
  - Nausea [Unknown]
  - Abnormal dreams [Unknown]
  - Somnolence [Unknown]
